FAERS Safety Report 6794455-5 (Version None)
Quarter: 2010Q2

REPORT INFORMATION
  Report Type: 
  Country: None (occurrence: None)
  Receive Date: 20100625
  Receipt Date: 20100616
  Transmission Date: 20101027
  Serious: Yes (Other)
  Sender: FDA-Public Use
  Company Number: US-BAYER-201018354NA

PATIENT
  Sex: Female
  Weight: 77 kg

DRUGS (1)
  1. YAZ [Suspect]
     Indication: DRUG USE FOR UNKNOWN INDICATION
     Route: 048
     Dates: end: 20090101

REACTIONS (26)
  - ABDOMINAL PAIN [None]
  - ABDOMINAL PAIN UPPER [None]
  - ASTHENIA [None]
  - BLADDER DISORDER [None]
  - DIZZINESS [None]
  - DYSPNOEA [None]
  - FATIGUE [None]
  - GASTROINTESTINAL DISORDER [None]
  - HEADACHE [None]
  - HEPATIC NEOPLASM [None]
  - HYPERHIDROSIS [None]
  - HYPOAESTHESIA [None]
  - INSOMNIA [None]
  - MOOD ALTERED [None]
  - MUSCLE SPASMS [None]
  - MUSCLE TIGHTNESS [None]
  - NAUSEA [None]
  - NEPHROPATHY [None]
  - PAIN IN EXTREMITY [None]
  - PHARYNGEAL OEDEMA [None]
  - SYNCOPE [None]
  - THROAT TIGHTNESS [None]
  - THROMBOSIS [None]
  - UNEVALUABLE EVENT [None]
  - VISUAL ACUITY REDUCED [None]
  - VOMITING [None]
